FAERS Safety Report 17766800 (Version 1)
Quarter: 2020Q2

REPORT INFORMATION
  Report Type: Spontaneous
  Country: JP (occurrence: JP)
  Receive Date: 20200511
  Receipt Date: 20200511
  Transmission Date: 20200714
  Serious: Yes (Other)
  Sender: FDA-Public Use
  Company Number: JP-SHIRE-JP201850218

PATIENT

DRUGS (5)
  1. YOKUKANSAN [Concomitant]
     Active Substance: HERBALS
     Indication: ATTENTION DEFICIT HYPERACTIVITY DISORDER
  2. ONON [Concomitant]
     Active Substance: PRANLUKAST
     Indication: PRODUCT USED FOR UNKNOWN INDICATION
  3. YOKUKANSAN [Concomitant]
     Active Substance: HERBALS
     Indication: AUTISM SPECTRUM DISORDER
     Dosage: UNK
  4. YOKUKANSAN [Concomitant]
     Active Substance: HERBALS
     Indication: INTELLECTUAL DISABILITY
  5. INTUNIV [Suspect]
     Active Substance: GUANFACINE HYDROCHLORIDE
     Indication: ATTENTION DEFICIT HYPERACTIVITY DISORDER
     Dosage: 1 MG, 1X/DAY:QD
     Route: 048
     Dates: start: 20181225, end: 20181227

REACTIONS (3)
  - Peripheral coldness [Recovered/Resolved]
  - Somnolence [Recovered/Resolved]
  - Intentional product use issue [Unknown]

NARRATIVE: CASE EVENT DATE: 20181225
